FAERS Safety Report 5292236-5 (Version None)
Quarter: 2007Q2

REPORT INFORMATION
  Report Type: 
  Country: None (occurrence: None)
  Receive Date: 20070410
  Receipt Date: 20070406
  Transmission Date: 20071010
  Serious: Yes (Disabling, Other)
  Sender: FDA-Public Use
  Company Number: BE-BRISTOL-MYERS SQUIBB COMPANY-13330030

PATIENT
  Age: 57 Year
  Sex: Female

DRUGS (4)
  1. DASATINIB [Suspect]
     Indication: LEUKAEMIA
     Route: 048
     Dates: start: 20051011
  2. ALLOPURINOL [Concomitant]
     Dates: start: 20051011
  3. IBUPROFEN [Concomitant]
     Dates: start: 20051011
  4. FUROSEMIDE [Concomitant]
     Dates: start: 20051020

REACTIONS (1)
  - PLEURAL EFFUSION [None]
